FAERS Safety Report 6736879-8 (Version None)
Quarter: 2010Q2

REPORT INFORMATION
  Report Type: 
  Country: None (occurrence: None)
  Receive Date: 20100520
  Receipt Date: 20100520
  Transmission Date: 20101027
  Serious: Yes (Hospitalization)
  Sender: FDA-Public Use
  Company Number: None

PATIENT
  Sex: Female
  Weight: 107.1 kg

DRUGS (3)
  1. CYTARABINE [Suspect]
     Dosage: 1512
     Dates: end: 20100423
  2. DAUNORUBICIN HCL [Suspect]
     Dosage: 372 MG
     Dates: end: 20100419
  3. ETOPOSIDE [Suspect]
     Dosage: 648 MG
     Dates: end: 20100419

REACTIONS (6)
  - ACUTE RESPIRATORY DISTRESS SYNDROME [None]
  - CHEST PAIN [None]
  - INFECTION [None]
  - PULMONARY ALVEOLAR HAEMORRHAGE [None]
  - PULMONARY TOXICITY [None]
  - PYREXIA [None]
